FAERS Safety Report 5872426-0 (Version None)
Quarter: 2008Q3

REPORT INFORMATION
  Report Type: 
  Country: None (occurrence: None)
  Receive Date: 20080905
  Receipt Date: 20080827
  Transmission Date: 20090109
  Serious: Yes (Other)
  Sender: FDA-Public Use
  Company Number: PHBS2008CH05460

PATIENT
  Age: 57 Year
  Sex: Female

DRUGS (4)
  1. DICLOFENAC SODIUM [Suspect]
     Indication: ARTHRALGIA
     Dosage: 75 MG, BID
  2. ASPIRIN [Concomitant]
     Indication: ARTERIOSCLEROSIS
     Dosage: 100 MG/DAY
  3. BONIVA [Concomitant]
     Indication: OSTEOPENIA
     Dosage: 150 MG ONCE PER MONTH
  4. CALCIMAGON-D3 [Concomitant]
     Indication: OSTEOPENIA

REACTIONS (10)
  - ABDOMINAL PAIN LOWER [None]
  - BLOOD CREATININE INCREASED [None]
  - C-REACTIVE PROTEIN INCREASED [None]
  - COLONIC STENOSIS [None]
  - CONSTIPATION [None]
  - NORMOCHROMIC NORMOCYTIC ANAEMIA [None]
  - SHIFT TO THE RIGHT [None]
  - TENDERNESS [None]
  - THROMBOCYTHAEMIA [None]
  - VOMITING [None]
